FAERS Safety Report 15934998 (Version 1)
Quarter: 2019Q1

REPORT INFORMATION
  Report Type: Spontaneous
  Country: IT (occurrence: IT)
  Receive Date: 20190207
  Receipt Date: 20190207
  Transmission Date: 20190417
  Serious: Yes (Hospitalization, Other)
  Sender: FDA-Public Use
  Company Number: IT-SHIRE-IT201903536

PATIENT

DRUGS (2)
  1. ONCO CARBIDE [Suspect]
     Active Substance: HYDROXYUREA
     Indication: ESSENTIAL THROMBOCYTHAEMIA
     Dosage: 2500 MILLIGRAM, 1X/DAY:QD
     Route: 048
     Dates: start: 20181101, end: 20181227
  2. 422 (ANAGRELIDE) [Suspect]
     Active Substance: ANAGRELIDE
     Indication: ESSENTIAL THROMBOCYTHAEMIA
     Route: 048
     Dates: start: 20181101, end: 20181227

REACTIONS (3)
  - Pancytopenia [Recovering/Resolving]
  - Skin exfoliation [Recovering/Resolving]
  - Pneumonitis [Recovering/Resolving]

NARRATIVE: CASE EVENT DATE: 20181227
